FAERS Safety Report 7296477-7 (Version None)
Quarter: 2011Q1

REPORT INFORMATION
  Report Type: 
  Country: None (occurrence: None)
  Receive Date: 20110216
  Receipt Date: 20110203
  Transmission Date: 20110831
  Serious: Yes (Hospitalization, Other)
  Sender: FDA-Public Use
  Company Number: PHHY2011CN08952

PATIENT
  Age: 42 Year
  Sex: Male

DRUGS (3)
  1. PREDNISONE TAB [Suspect]
     Indication: SYSTEMIC LUPUS ERYTHEMATOSUS
     Dosage: 60 MG, QD
     Route: 048
     Dates: start: 20091201
  2. PREDNISONE TAB [Suspect]
     Dosage: 20 MG, QD
     Route: 048
  3. PREDNISONE TAB [Suspect]
     Dosage: 30 MG, QD
     Route: 048

REACTIONS (7)
  - ABDOMINAL DISTENSION [None]
  - DECREASED APPETITE [None]
  - HEPATITIS B [None]
  - PERITONITIS BACTERIAL [None]
  - FATIGUE [None]
  - ACUTE HEPATIC FAILURE [None]
  - HEPATIC ENCEPHALOPATHY [None]
